FAERS Safety Report 16046776 (Version 1)
Quarter: 2019Q1

REPORT INFORMATION
  Report Type: Spontaneous
  Country: US (occurrence: US)
  Receive Date: 20190307
  Receipt Date: 20190307
  Transmission Date: 20190418
  Serious: Yes (Hospitalization)
  Sender: FDA-Public Use
  Company Number: US-TEVA-2019-US-1019699

PATIENT
  Age: 34 Year
  Sex: Female

DRUGS (1)
  1. PANTOPRAZOLE [Suspect]
     Active Substance: PANTOPRAZOLE
     Indication: GASTROOESOPHAGEAL REFLUX DISEASE
     Route: 065

REACTIONS (3)
  - Staphylococcal infection [Recovered/Resolved]
  - Cardiovascular symptom [Recovered/Resolved]
  - Acute generalised exanthematous pustulosis [Recovered/Resolved]
